FAERS Safety Report 6951425-1 (Version None)
Quarter: 2010Q3

REPORT INFORMATION
  Report Type: 
  Country: None (occurrence: None)
  Receive Date: 20100828
  Receipt Date: 20100323
  Transmission Date: 20110219
  Serious: No
  Sender: FDA-Public Use
  Company Number: US-ABBOTT-10P-163-0634669-00

PATIENT
  Sex: Female
  Weight: 54.48 kg

DRUGS (9)
  1. NIASPAN [Suspect]
     Indication: BLOOD CHOLESTEROL INCREASED
     Route: 048
  2. CRESTOR [Suspect]
     Indication: BLOOD CHOLESTEROL
     Dates: start: 20100106, end: 20100312
  3. CRESTOR [Suspect]
     Dates: start: 20100312, end: 20100317
  4. CRESTOR [Suspect]
     Route: 048
     Dates: start: 20100317
  5. ATENOLOL [Concomitant]
     Indication: MITRAL VALVE PROLAPSE
  6. CLONIDINE [Concomitant]
     Indication: HOT FLUSH
  7. FISH OIL [Concomitant]
     Indication: PRODUCT USED FOR UNKNOWN INDICATION
  8. ASPIRIN [Concomitant]
     Indication: PRODUCT USED FOR UNKNOWN INDICATION
  9. TUMS [Concomitant]
     Indication: BLOOD CALCIUM

REACTIONS (4)
  - HIGH DENSITY LIPOPROTEIN DECREASED [None]
  - LOW DENSITY LIPOPROTEIN INCREASED [None]
  - MUSCLE SPASMS [None]
  - MYALGIA [None]
